FAERS Safety Report 11051063 (Version 2)
Quarter: 2015Q2

REPORT INFORMATION
  Report Type: Spontaneous
  Country: PT (occurrence: PT)
  Receive Date: 20150421
  Receipt Date: 20150508
  Transmission Date: 20150821
  Serious: Yes (Other)
  Sender: FDA-Public Use
  Company Number: PT-ABBVIE-15K-130-1378017-00

PATIENT
  Age: 50 Year
  Sex: Female

DRUGS (2)
  1. HUMIRA [Suspect]
     Active Substance: ADALIMUMAB
     Indication: AXIAL SPONDYLOARTHRITIS
     Route: 058
     Dates: start: 201307
  2. HUMIRA [Suspect]
     Active Substance: ADALIMUMAB
     Indication: UVEITIS

REACTIONS (6)
  - Cataract [Unknown]
  - Iris adhesions [Unknown]
  - Iridocyclitis [Recovered/Resolved]
  - Cystoid macular oedema [Recovered/Resolved]
  - Axial spondyloarthritis [Unknown]
  - Uveitis [Unknown]

NARRATIVE: CASE EVENT DATE: 201409
